FAERS Safety Report 8564298-0 (Version None)
Quarter: 2012Q3

REPORT INFORMATION
  Report Type: 
  Country: None (occurrence: None)
  Receive Date: 20120803
  Receipt Date: 20120726
  Transmission Date: 20120928
  Serious: Yes (Hospitalization)
  Sender: FDA-Public Use
  Company Number: DE-JNJFOC-20120606873

PATIENT
  Sex: Male
  Weight: 76 kg

DRUGS (2)
  1. STELARA [Suspect]
     Route: 058
     Dates: end: 20120613
  2. STELARA [Suspect]
     Indication: PSORIASIS
     Route: 058
     Dates: start: 20090922

REACTIONS (1)
  - ACUTE MYOCARDIAL INFARCTION [None]
